FAERS Safety Report 25554874 (Version 1)
Quarter: 2025Q3

REPORT INFORMATION
  Report Type: Spontaneous
  Country: AR (occurrence: AR)
  Receive Date: 20250715
  Receipt Date: 20250715
  Transmission Date: 20251021
  Serious: Yes (Hospitalization)
  Sender: NOVARTIS
  Company Number: AR-002147023-NVSC2025AR109541

PATIENT
  Age: 53 Year
  Sex: Female

DRUGS (3)
  1. ASCIMINIB [Suspect]
     Active Substance: ASCIMINIB
     Indication: Chronic myeloid leukaemia
     Route: 065
     Dates: start: 20250118
  2. ASCIMINIB [Suspect]
     Active Substance: ASCIMINIB
     Route: 065
  3. ASCIMINIB [Suspect]
     Active Substance: ASCIMINIB
     Route: 065

REACTIONS (18)
  - Autonomic nervous system imbalance [Unknown]
  - Myopericarditis [Unknown]
  - Syncope [Unknown]
  - Cardiotoxicity [Unknown]
  - Pain in extremity [Unknown]
  - Abdominal pain [Unknown]
  - Tachycardia [Unknown]
  - Neuropathy peripheral [Unknown]
  - Muscle spasticity [Unknown]
  - Gait disturbance [Unknown]
  - Pericardial effusion [Unknown]
  - Neutrophil count decreased [Unknown]
  - Azotaemia [Unknown]
  - Blood sodium increased [Unknown]
  - Blood pressure diastolic increased [Unknown]
  - Chest pain [Unknown]
  - Postural orthostatic tachycardia syndrome [Unknown]
  - Dyspnoea [Unknown]
